FAERS Safety Report 10021624 (Version 1)
Quarter: 2014Q1

REPORT INFORMATION
  Report Type: Spontaneous
  Country: US (occurrence: None)
  Receive Date: 20140318
  Receipt Date: 20140318
  Transmission Date: 20141002
  Serious: No
  Sender: FDA-Public Use
  Company Number: None

PATIENT
  Age: 50 Year
  Sex: Female
  Weight: 68.04 kg

DRUGS (1)
  1. LEVAQUIN [Suspect]
     Indication: POST PROCEDURAL INFECTION
     Dosage: 1 TABLET
     Route: 048
     Dates: start: 20131010, end: 20131015

REACTIONS (5)
  - Asthenia [None]
  - Pain [None]
  - Muscle fatigue [None]
  - Musculoskeletal pain [None]
  - Arthralgia [None]
